FAERS Safety Report 14076273 (Version 13)
Quarter: 2019Q1

REPORT INFORMATION
  Report Type: Spontaneous
  Country: ES (occurrence: ES)
  Receive Date: 20171011
  Receipt Date: 20190219
  Transmission Date: 20190417
  Serious: Yes (Hospitalization, Other)
  Sender: FDA-Public Use
  Company Number: ES-JNJFOC-20171005543

PATIENT
  Age: 87 Year
  Sex: Male
  Weight: 87 kg

DRUGS (44)
  1. STELARA [Suspect]
     Active Substance: USTEKINUMAB
     Indication: ERYTHRODERMIC PSORIASIS
     Route: 058
     Dates: start: 20170803, end: 20170803
  2. NEOTIGASON [Suspect]
     Active Substance: ACITRETIN
     Indication: ERYTHRODERMIC PSORIASIS
     Route: 065
     Dates: start: 20170728, end: 20170728
  3. MONOLITUM [Concomitant]
     Active Substance: LANSOPRAZOLE
     Route: 065
     Dates: start: 20170401
  4. SEGURIL [Concomitant]
     Active Substance: FUROSEMIDE
     Dosage: 1.5 (60 MG/ DAY)
     Route: 065
     Dates: start: 20170802, end: 20170802
  5. SALMETEROL [Concomitant]
     Active Substance: SALMETEROL
     Dosage: 1 INHALATION
     Route: 055
  6. EUCERIN [Concomitant]
     Active Substance: ENSULIZOLE\EUCERIN\OCTINOXATE\OCTISALATE\TITANIUM DIOXIDE\ZINC OXIDE
     Route: 065
  7. SALMETEROL [Concomitant]
     Active Substance: SALMETEROL
     Dosage: 1 INHALATION
     Route: 065
  8. ACICLOVIR [Suspect]
     Active Substance: ACYCLOVIR
     Indication: ERYTHRODERMIC PSORIASIS
     Route: 042
     Dates: start: 20170810
  9. SIMVASTATIN. [Concomitant]
     Active Substance: SIMVASTATIN
     Route: 065
  10. ZYLORIC [Concomitant]
     Active Substance: ALLOPURINOL
     Route: 065
  11. SPIRONOLACTONE. [Concomitant]
     Active Substance: SPIRONOLACTONE
     Indication: PRODUCT USED FOR UNKNOWN INDICATION
     Dosage: TOTAL 1200 MG ONCE A DAY
     Route: 065
     Dates: start: 20170802
  12. LISALGIL [Suspect]
     Active Substance: METAMIZOLE SODIUM
     Indication: PRODUCT USED FOR UNKNOWN INDICATION
     Dosage: TOTAL 1200 MG ONCE A DAY
     Route: 042
     Dates: start: 201708
  13. STELARA [Suspect]
     Active Substance: USTEKINUMAB
     Indication: ERYTHRODERMIC PSORIASIS
     Route: 058
  14. ACICLOVIR [Suspect]
     Active Substance: ACYCLOVIR
     Indication: ERYTHRODERMIC PSORIASIS
     Route: 042
     Dates: start: 20170810
  15. CEFTRIAXONE. [Suspect]
     Active Substance: CEFTRIAXONE
     Indication: PRODUCT USED FOR UNKNOWN INDICATION
     Route: 030
     Dates: start: 20170801, end: 20170812
  16. ENALAPRIL [Concomitant]
     Active Substance: ENALAPRIL
     Route: 065
  17. ALDACTONE [Concomitant]
     Active Substance: SPIRONOLACTONE
     Route: 065
     Dates: end: 20170802
  18. BILAXTEN [Concomitant]
     Active Substance: BILASTINE
     Route: 048
     Dates: start: 20170726, end: 20170726
  19. DIPROGENTA [Concomitant]
     Active Substance: BETAMETHASONE DIPROPIONATE\GENTAMICIN SULFATE
     Dosage: 1 DF, FOR 10 DAYS
     Route: 061
  20. ACICLOVIR [Suspect]
     Active Substance: ACYCLOVIR
     Indication: ERYTHRODERMIC PSORIASIS
     Dosage: TOTAL 1200 MG ONCE A DAY
     Route: 042
     Dates: start: 20170810
  21. NOLOTIL (METAMIZOLE MAGNESIUM) [Suspect]
     Active Substance: METAMIZOLE MAGNESIUM
     Indication: PRODUCT USED FOR UNKNOWN INDICATION
     Route: 042
     Dates: start: 201708
  22. NEOTIGASON [Suspect]
     Active Substance: ACITRETIN
     Indication: ERYTHRODERMIC PSORIASIS
     Route: 065
     Dates: start: 20170728, end: 20170728
  23. LORATADINE. [Concomitant]
     Active Substance: LORATADINE
     Route: 048
     Dates: start: 20170726
  24. DIPROGENTA [Concomitant]
     Active Substance: BETAMETHASONE DIPROPIONATE\GENTAMICIN SULFATE
     Dosage: 1 DF, FOR 10 DAYS
     Route: 061
  25. LISALGIL [Suspect]
     Active Substance: METAMIZOLE SODIUM
     Indication: PRODUCT USED FOR UNKNOWN INDICATION
     Route: 042
     Dates: start: 20170801
  26. OMNIC OCAS [Concomitant]
     Active Substance: TAMSULOSIN HYDROCHLORIDE
     Route: 065
  27. BETAMETHASONE W/CALCIPOTRIOL [Concomitant]
     Active Substance: BETAMETHASONE DIPROPIONATE\CALCIPOTRIENE HYDRATE
     Dosage: 1 DOSE
     Route: 065
     Dates: start: 201704
  28. AZITHROMYCIN ANHYDROUS. [Concomitant]
     Active Substance: AZITHROMYCIN ANHYDROUS
     Route: 065
     Dates: start: 20170812, end: 20170812
  29. STELARA [Suspect]
     Active Substance: USTEKINUMAB
     Indication: PSORIASIS
     Route: 058
     Dates: start: 20170803, end: 20170803
  30. STELARA [Suspect]
     Active Substance: USTEKINUMAB
     Indication: PSORIASIS
     Route: 058
  31. FLUCONAZOLE. [Suspect]
     Active Substance: FLUCONAZOLE
     Indication: PRODUCT USED FOR UNKNOWN INDICATION
     Dosage: ON ALLOPURINOL FOR 6 YEARS
     Route: 042
     Dates: start: 20170810
  32. ALLOPURINOL. [Suspect]
     Active Substance: ALLOPURINOL
     Indication: HYPERURICAEMIA
     Dosage: ON ALLOPURINOL FOR 6 YEARS
     Route: 065
     Dates: start: 20110101
  33. NOLOTIL (METAMIZOLE MAGNESIUM) [Suspect]
     Active Substance: METAMIZOLE MAGNESIUM
     Indication: PRODUCT USED FOR UNKNOWN INDICATION
     Route: 042
     Dates: start: 201708
  34. BRETARIS GENUAIR [Concomitant]
     Active Substance: ACLIDINIUM BROMIDE
     Dosage: 1 INHALATION
     Route: 055
  35. ACITRETIN. [Concomitant]
     Active Substance: ACITRETIN
     Route: 065
     Dates: start: 20170728
  36. DIPROGENTA [Concomitant]
     Active Substance: BETAMETHASONE DIPROPIONATE\GENTAMICIN SULFATE
     Route: 061
  37. ACICLOVIR [Suspect]
     Active Substance: ACYCLOVIR
     Indication: PRODUCT USED FOR UNKNOWN INDICATION
     Dosage: TOTAL 1200 MG ONCE A DAY
     Route: 058
     Dates: start: 20170810
  38. DACORTIN [Concomitant]
     Active Substance: PREDNISONE
     Route: 065
     Dates: start: 20170801, end: 20170801
  39. BILAXTEN [Concomitant]
     Active Substance: BILASTINE
     Route: 048
     Dates: start: 20170726, end: 20170726
  40. BRETARIS GENUAIR [Concomitant]
     Active Substance: ACLIDINIUM BROMIDE
     Route: 055
  41. PARACETAMOL [Concomitant]
     Active Substance: ACETAMINOPHEN
     Dosage: TOTAL 1300 MG ONCE A DAY
     Route: 065
  42. AUXINA A+E [Concomitant]
     Route: 048
     Dates: start: 201704, end: 20170726
  43. LORATADINE. [Concomitant]
     Active Substance: LORATADINE
     Route: 048
     Dates: start: 20170726
  44. JUNIPER OIL [Concomitant]
     Active Substance: HERBALS\JUNIPERUS COMMUNIS WHOLE
     Dosage: BATHROOMS WITH JUNIPER OIL ONCE A DAY FOR 20 MINUTES.
     Route: 065

REACTIONS (5)
  - Toxic epidermal necrolysis [Recovered/Resolved]
  - Fungal infection [Recovering/Resolving]
  - Off label use [Unknown]
  - Oral candidiasis [Recovering/Resolving]
  - Product use issue [Unknown]

NARRATIVE: CASE EVENT DATE: 2017
